FAERS Safety Report 4988164-2 (Version None)
Quarter: 2006Q2

REPORT INFORMATION
  Report Type: 
  Country: None (occurrence: None)
  Receive Date: 20060425
  Receipt Date: 20060407
  Transmission Date: 20061013
  Serious: Yes (Hospitalization, Congenital Anomaly, Other)
  Sender: FDA-Public Use
  Company Number: 2005156610

PATIENT
  Age: 4 Month
  Sex: Male
  Weight: 6.9 kg

DRUGS (7)
  1. ZYRTEC [Suspect]
     Indication: HYPERSENSITIVITY
  2. DILANTIN [Suspect]
     Indication: EPILEPSY
  3. KEPPRA [Suspect]
     Indication: ILL-DEFINED DISORDER
     Dosage: 2000 MG (DAILY),
     Dates: end: 20050516
  4. PAXIL CR [Suspect]
     Indication: DEPRESSION
  5. SEROQUEL [Suspect]
     Indication: SLEEP DISORDER
  6. CITRUCEL (METHYLCELLULOSE) [Suspect]
     Indication: ILL-DEFINED DISORDER
  7. FOLIC ACID [Concomitant]

REACTIONS (5)
  - ADRENAL INSUFFICIENCY [None]
  - ARNOLD-CHIARI MALFORMATION [None]
  - DEVELOPMENTAL DELAY [None]
  - DRUG EXPOSURE DURING PREGNANCY [None]
  - PREMATURE BABY [None]
